FAERS Safety Report 21268501 (Version 1)
Quarter: 2022Q3

REPORT INFORMATION
  Report Type: Spontaneous
  Country: US (occurrence: None)
  Receive Date: 20220830
  Receipt Date: 20220830
  Transmission Date: 20221027
  Serious: No
  Sender: FDA-Public Use
  Company Number: 2022A290383

PATIENT
  Age: 626 Month
  Sex: Female
  Weight: 77.1 kg

DRUGS (1)
  1. BUDESONIDE\FORMOTEROL\GLYCOPYRRONIUM [Suspect]
     Active Substance: BUDESONIDE\FORMOTEROL\GLYCOPYRRONIUM
     Indication: Asthma
     Route: 055
     Dates: start: 202208

REACTIONS (4)
  - Taste disorder [Unknown]
  - Tongue discolouration [Unknown]
  - Hypertension [Unknown]
  - Device use issue [Unknown]

NARRATIVE: CASE EVENT DATE: 20220801
